FAERS Safety Report 8520045-X (Version None)
Quarter: 2012Q3

REPORT INFORMATION
  Report Type: 
  Country: None (occurrence: None)
  Receive Date: 20120719
  Receipt Date: 20120716
  Transmission Date: 20120928
  Serious: No
  Sender: FDA-Public Use
  Company Number: US-PFIZER INC-2012171771

PATIENT
  Age: 69 Year
  Sex: Female

DRUGS (4)
  1. ADVIL [Suspect]
     Dosage: UNK
  2. TYLENOL [Suspect]
     Dosage: UNK
  3. ASPIRIN [Suspect]
     Dosage: UNK
  4. ALEVE [Suspect]
     Dosage: UNK

REACTIONS (1)
  - DYSPEPSIA [None]
